FAERS Safety Report 15892551 (Version 1)
Quarter: 2019Q1

REPORT INFORMATION
  Report Type: Report from Study
  Country: US (occurrence: US)
  Receive Date: 20190130
  Receipt Date: 20190130
  Transmission Date: 20190417
  Serious: No
  Sender: FDA-Public Use
  Company Number: US-EXELIXIS-CABO-18017035

PATIENT
  Sex: Female

DRUGS (5)
  1. CABOMETYX [Suspect]
     Active Substance: CABOZANTINIB S-MALATE
     Indication: RENAL CANCER
     Dosage: 60 MG, QD
     Route: 048
     Dates: start: 20181017, end: 20181108
  2. XARELTO [Concomitant]
     Active Substance: RIVAROXABAN
  3. CABOMETYX [Suspect]
     Active Substance: CABOZANTINIB S-MALATE
     Dosage: 40 MG, QD
     Route: 048
     Dates: start: 2018
  4. LIDOCAINE. [Concomitant]
     Active Substance: LIDOCAINE
  5. DEXAMETHASONE. [Concomitant]
     Active Substance: DEXAMETHASONE

REACTIONS (8)
  - Hyperkeratosis [Recovering/Resolving]
  - Stomatitis [Not Recovered/Not Resolved]
  - Candida infection [Unknown]
  - Skin ulcer [Not Recovered/Not Resolved]
  - Productive cough [Recovering/Resolving]
  - Oropharyngeal pain [Unknown]
  - Muscle spasms [Unknown]
  - Dry mouth [Unknown]

NARRATIVE: CASE EVENT DATE: 2018
